FAERS Safety Report 5099708-7 (Version None)
Quarter: 2006Q3

REPORT INFORMATION
  Report Type: 
  Country: None (occurrence: None)
  Receive Date: 20060908
  Receipt Date: 20060719
  Transmission Date: 20061208
  Serious: Yes (Death)
  Sender: FDA-Public Use
  Company Number: US-GLAXOSMITHKLINE-A0612835A

PATIENT
  Age: 27 Year
  Sex: Female

DRUGS (1)
  1. LAMICTAL [Suspect]
     Dosage: 100MG AT NIGHT
     Route: 048
     Dates: start: 20060301

REACTIONS (4)
  - CARDIO-RESPIRATORY ARREST [None]
  - EPILEPSY [None]
  - INSOMNIA [None]
  - WEIGHT INCREASED [None]
